FAERS Safety Report 9778461 (Version 1)
Quarter: 2013Q4

REPORT INFORMATION
  Report Type: Spontaneous
  Country: GB (occurrence: GB)
  Receive Date: 20131223
  Receipt Date: 20131223
  Transmission Date: 20140711
  Serious: Yes (Other)
  Sender: FDA-Public Use
  Company Number: GB-ASTELLAS-2013EU011100

PATIENT
  Sex: Male

DRUGS (2)
  1. VESICARE [Suspect]
     Indication: LOWER URINARY TRACT SYMPTOMS
     Dosage: UNK
     Route: 065
  2. VESICARE [Suspect]
     Indication: BENIGN PROSTATIC HYPERPLASIA

REACTIONS (2)
  - Off label use [Unknown]
  - Glomerular filtration rate decreased [Unknown]
